FAERS Safety Report 6435692-9 (Version None)
Quarter: 2009Q4

REPORT INFORMATION
  Report Type: 
  Country: None (occurrence: None)
  Receive Date: 20091111
  Receipt Date: 20091030
  Transmission Date: 20100525
  Serious: Yes (Hospitalization, Other)
  Sender: FDA-Public Use
  Company Number: PHEH2009US12988

PATIENT
  Sex: Male
  Weight: 50.3 kg

DRUGS (2)
  1. EXJADE [Suspect]
     Indication: HAEMOCHROMATOSIS
     Dosage: 1250 MG DAILY
     Route: 048
     Dates: start: 20080204
  2. ASPIRIN [Concomitant]

REACTIONS (6)
  - NAUSEA [None]
  - ODYNOPHAGIA [None]
  - PHARYNGITIS [None]
  - PYREXIA [None]
  - STREPTOCOCCAL INFECTION [None]
  - STREPTOCOCCUS TEST POSITIVE [None]
